FAERS Safety Report 4879966-1 (Version None)
Quarter: 2006Q1

REPORT INFORMATION
  Report Type: 
  Country: None (occurrence: None)
  Receive Date: 20060111
  Receipt Date: 20050914
  Transmission Date: 20060701
  Serious: No
  Sender: FDA-Public Use
  Company Number: 2005S1000197

PATIENT
  Age: 53 Year
  Weight: 125 kg

DRUGS (8)
  1. CUBICIN [Suspect]
     Indication: ARTHRITIS BACTERIAL
     Dosage: 500 MG;Q24H;IV
     Route: 042
     Dates: start: 20050831, end: 20050913
  2. CUBICIN [Suspect]
     Indication: STAPHYLOCOCCAL INFECTION
     Dosage: 500 MG;Q24H;IV
     Route: 042
     Dates: start: 20050831, end: 20050913
  3. TRICOR [Concomitant]
  4. INDOCIN [Concomitant]
  5. GLIPIZIDE [Concomitant]
  6. PIOGLITAZONE HCL [Concomitant]
  7. LORTAB [Concomitant]
  8. VANCOMYCIN [Concomitant]

REACTIONS (2)
  - BLOOD CREATINE PHOSPHOKINASE INCREASED [None]
  - MYALGIA [None]
